FAERS Safety Report 8258849-3 (Version None)
Quarter: 2012Q2

REPORT INFORMATION
  Report Type: 
  Country: None (occurrence: None)
  Receive Date: 20120404
  Receipt Date: 20120327
  Transmission Date: 20120825
  Serious: Yes (Life-Threatening, Hospitalization)
  Sender: FDA-Public Use
  Company Number: SK-UCBSA-045274

PATIENT
  Age: 74 Year
  Sex: Female
  Weight: 82 kg

DRUGS (34)
  1. VINPOCETIN COVEX [Concomitant]
     Indication: ENCEPHALOPATHY
     Dates: start: 20100823, end: 20110920
  2. CIPROFLOXACIN [Concomitant]
     Dosage: SOLUTION
     Dates: start: 20111016, end: 20111001
  3. POTASSIUM CHLORIDE [Suspect]
     Indication: METABOLIC DISORDER
  4. RAMIPRIL [Concomitant]
     Indication: HYPERTENSION
  5. LYRICA [Concomitant]
     Indication: NEURALGIA
     Dates: start: 20100923
  6. CAVINTON FORTE [Concomitant]
     Dates: start: 20111109
  7. INFUSIO NATRIL CHLORATI ISOTONICA [Concomitant]
     Indication: METABOLIC DISORDER
     Dosage: SOLUTION
     Dates: start: 20111016, end: 20111001
  8. NEUPRO [Suspect]
     Indication: PARKINSON'S DISEASE
     Route: 062
     Dates: start: 20110223, end: 20111108
  9. ANOPYRIN [Concomitant]
     Indication: THROMBOSIS PROPHYLAXIS
  10. NOOTROPIL [Concomitant]
     Indication: COGNITIVE DISORDER
  11. CARBIDOPA AND LEVODOPA [Concomitant]
     Dates: start: 20101003, end: 20110120
  12. CIPROFLOXACIN [Concomitant]
     Indication: UPPER RESPIRATORY TRACT INFECTION
     Dates: start: 20111001, end: 20111001
  13. CALCIUM RESONIUM [Concomitant]
     Indication: METABOLIC DISORDER
     Dosage: FORM: POWDER
     Dates: start: 20111016, end: 20111001
  14. INFUSIO GLUCOSI [Concomitant]
     Indication: METABOLIC DISORDER
     Dosage: SOLUTION
     Dates: start: 20111016, end: 20111001
  15. NEUPRO [Suspect]
     Route: 062
     Dates: start: 20110215, end: 20110222
  16. BISOPROLOL FUMARATE [Concomitant]
     Indication: MYOCARDIAL ISCHAEMIA
  17. NEBIVOLOL HCL [Concomitant]
     Indication: HYPERTENSION
  18. COSTI [Concomitant]
     Indication: PROPHYLAXIS
     Dates: start: 20100921
  19. ENOXAPARIN SODIUM [Concomitant]
     Indication: THROMBOSIS PROPHYLAXIS
     Dosage: AMPOULES
     Dates: start: 20111016, end: 20111001
  20. ALLOPURINOL [Concomitant]
     Indication: HYPERURICAEMIA
  21. HUMULIN R [Concomitant]
     Indication: METABOLIC DISORDER
     Dosage: AMPOULES
     Dates: start: 20111001, end: 20111001
  22. OMEPRAZOLE [Concomitant]
     Indication: PROPHYLAXIS
  23. AMICLOTON [Concomitant]
     Indication: HYPERTENSION
     Dates: end: 20111016
  24. CAVINTON FORTE [Concomitant]
     Indication: ENCEPHALOPATHY
     Dates: start: 20110921, end: 20111108
  25. NEUPRO [Suspect]
     Route: 062
     Dates: start: 20110208, end: 20110214
  26. NEUPRO [Suspect]
     Route: 062
     Dates: start: 20110201, end: 20110207
  27. FUROSEMIDE [Concomitant]
     Indication: CHRONIC ALLOGRAFT NEPHROPATHY
  28. SIMVOR [Concomitant]
     Indication: HYPERCHOLESTEROLAEMIA
     Dates: end: 20111001
  29. CARBIDOPA AND LEVODOPA [Concomitant]
     Indication: PARKINSON'S DISEASE
     Dates: start: 20110121
  30. CARBIDOPA AND LEVODOPA [Concomitant]
     Dates: start: 20100927, end: 20100929
  31. CARBIDOPA AND LEVODOPA [Concomitant]
     Dates: start: 20100923, end: 20100926
  32. AMOXICILLIN AND CLAVULANATE POTASSIUM [Concomitant]
     Indication: UPPER RESPIRATORY TRACT INFECTION
     Dates: start: 20111010, end: 20111016
  33. ALPHA D3 [Concomitant]
     Indication: OSTEOPOROSIS PROPHYLAXIS
     Dates: start: 20110120
  34. CARBIDOPA AND LEVODOPA [Concomitant]
     Dates: start: 20100930, end: 20101002

REACTIONS (1)
  - RENAL FAILURE ACUTE [None]
